FAERS Safety Report 7357502-8 (Version None)
Quarter: 2011Q1

REPORT INFORMATION
  Report Type: 
  Country: None (occurrence: None)
  Receive Date: 20110317
  Receipt Date: 20110304
  Transmission Date: 20110831
  Serious: Yes (Disabling, Other)
  Sender: FDA-Public Use
  Company Number: PHFR2011GB00560

PATIENT
  Sex: Female

DRUGS (2)
  1. LOFEPRAMINE [Concomitant]
     Indication: DEPRESSION
     Dosage: 70 MG, QD
     Dates: start: 20070101
  2. CLOZARIL [Suspect]
     Indication: SCHIZOPHRENIA
     Dosage: 350 MG, QD
     Route: 048
     Dates: start: 19930101

REACTIONS (6)
  - DECREASED APPETITE [None]
  - WHITE BLOOD CELL COUNT INCREASED [None]
  - LUNG CONSOLIDATION [None]
  - LOWER RESPIRATORY TRACT INFECTION [None]
  - GASTROINTESTINAL DISORDER [None]
  - NEUTROPHIL COUNT INCREASED [None]
